FAERS Safety Report 23462542 (Version 1)
Quarter: 2024Q1

REPORT INFORMATION
  Report Type: Spontaneous
  Country: US (occurrence: None)
  Receive Date: 20240130
  Receipt Date: 20240130
  Transmission Date: 20240410
  Serious: Yes (Life-Threatening, Hospitalization, Other)
  Sender: FDA-Public Use
  Company Number: None

PATIENT
  Age: 69 Year
  Sex: Female

DRUGS (5)
  1. ZEPBOUND [Suspect]
     Active Substance: TIRZEPATIDE
     Indication: Weight control
     Dates: start: 20231220, end: 20240124
  2. SIMVASTATIN [Concomitant]
     Active Substance: SIMVASTATIN
  3. OMEPRAZOLE [Concomitant]
     Active Substance: OMEPRAZOLE
  4. FAMOTIDINE [Concomitant]
     Active Substance: FAMOTIDINE
  5. LEVOTHYROXINE [Concomitant]
     Active Substance: LEVOTHYROXINE\LEVOTHYROXINE SODIUM

REACTIONS (11)
  - Therapy change [None]
  - Malaise [None]
  - Vomiting [None]
  - Diarrhoea [None]
  - Pain [None]
  - Discomfort [None]
  - Loss of personal independence in daily activities [None]
  - Gastrooesophageal reflux disease [None]
  - Fluid intake reduced [None]
  - Chromaturia [None]
  - Visual impairment [None]

NARRATIVE: CASE EVENT DATE: 20240124
